APPROVED DRUG PRODUCT: LOTENSIN HCT
Active Ingredient: BENAZEPRIL HYDROCHLORIDE; HYDROCHLOROTHIAZIDE
Strength: 5MG;6.25MG **Federal Register determination that product was not discontinued or withdrawn for safety or effectiveness reasons**
Dosage Form/Route: TABLET;ORAL
Application: N020033 | Product #001
Applicant: VALIDUS PHARMACEUTICALS LLC
Approved: May 19, 1992 | RLD: Yes | RS: No | Type: DISCN